FAERS Safety Report 8134523-9 (Version None)
Quarter: 2012Q1

REPORT INFORMATION
  Report Type: 
  Country: None (occurrence: None)
  Receive Date: 20120214
  Receipt Date: 20120205
  Transmission Date: 20120608
  Serious: Yes (Hospitalization)
  Sender: FDA-Public Use
  Company Number: ES-SHIRE-SPV1-2012-00117

PATIENT
  Age: 55 Year

DRUGS (1)
  1. FOSRENOL [Suspect]
     Indication: HYPERPHOSPHATAEMIA
     Dosage: 3 G, 1X/DAY:QD
     Route: 048

REACTIONS (3)
  - GASTROINTESTINAL HYPOMOTILITY [None]
  - DIVERTICULITIS [None]
  - CONSTIPATION [None]
